FAERS Safety Report 17898073 (Version 2)
Quarter: 2020Q3

REPORT INFORMATION
  Report Type: Spontaneous
  Country: IT (occurrence: IT)
  Receive Date: 20200616
  Receipt Date: 20200706
  Transmission Date: 20201103
  Serious: Yes (Hospitalization)
  Sender: FDA-Public Use
  Company Number: IT-SUN PHARMACEUTICAL INDUSTRIES LTD-2020RR-250385

PATIENT
  Age: 62 Year
  Sex: Male

DRUGS (7)
  1. PLAQUENIL [Suspect]
     Active Substance: HYDROXYCHLOROQUINE SULFATE
     Indication: CORONAVIRUS INFECTION
     Dosage: 2 DOSAGE FORM, DAILY
     Route: 048
     Dates: start: 20200318, end: 20200406
  2. FIDATO [Suspect]
     Active Substance: CEFTRIAXONE SODIUM
     Indication: CORONAVIRUS INFECTION
     Dosage: 1 DOSAGE FORM, DAILY
     Route: 042
     Dates: start: 20200325, end: 20200331
  3. KALETRA [Suspect]
     Active Substance: LOPINAVIR\RITONAVIR
     Indication: CORONAVIRUS INFECTION
     Dosage: 4 DOSAGE FORM, DAILY
     Route: 048
     Dates: start: 20200325, end: 20200406
  4. ROACTEMRA 20 MG/ML CONCENTRATE FOR SOLUTION FOR INFUSION [Suspect]
     Active Substance: TOCILIZUMAB
     Indication: CORONAVIRUS INFECTION
     Dosage: 1 DOSAGE FORM, DAILY
     Route: 065
     Dates: start: 20200402, end: 20200403
  5. CLEXANE [Suspect]
     Active Substance: ENOXAPARIN SODIUM
     Indication: CORONAVIRUS INFECTION
     Dosage: 8000 KILO?INTERNATIONAL UNIT, DAILY
     Route: 058
     Dates: start: 20200401, end: 20200428
  6. AZITHROMYCIN ANHYDROUS. [Suspect]
     Active Substance: AZITHROMYCIN ANHYDROUS
     Indication: CORONAVIRUS INFECTION
     Dosage: 500 MILLIGRAM, DAILY
     Route: 048
     Dates: start: 20200318, end: 20200331
  7. URBASON SOLUBILE [Suspect]
     Active Substance: METHYLPREDNISOLONE SODIUM SUCCINATE
     Indication: CORONAVIRUS INFECTION
     Dosage: 1 DOSAGE FORM, DAILY
     Route: 042
     Dates: start: 20200327, end: 20200405

REACTIONS (4)
  - Pruritus [Recovering/Resolving]
  - Rash [Recovering/Resolving]
  - Eosinophilia [Recovering/Resolving]
  - Off label use [Recovering/Resolving]

NARRATIVE: CASE EVENT DATE: 20200417
